FAERS Safety Report 21906307 (Version 1)
Quarter: 2023Q1

REPORT INFORMATION
  Report Type: Spontaneous
  Country: US (occurrence: US)
  Receive Date: 20230125
  Receipt Date: 20230125
  Transmission Date: 20230417
  Serious: No
  Sender: FDA-Public Use
  Company Number: US-SA-SAC20230123000890

PATIENT
  Age: 17 Year
  Sex: Female

DRUGS (1)
  1. DUPIXENT [Suspect]
     Active Substance: DUPILUMAB
     Indication: Eosinophilic oesophagitis
     Dosage: 300MG, OTHER
     Route: 058
     Dates: start: 202210

REACTIONS (4)
  - Injection site rash [Recovered/Resolved]
  - Epistaxis [Unknown]
  - Illness [Unknown]
  - Vision blurred [Unknown]

NARRATIVE: CASE EVENT DATE: 20221001
